FAERS Safety Report 9500926 (Version 1)
Quarter: 2013Q3

REPORT INFORMATION
  Report Type: Spontaneous
  Country: US (occurrence: US)
  Receive Date: 20130905
  Receipt Date: 20130905
  Transmission Date: 20140515
  Serious: No
  Sender: FDA-Public Use
  Company Number: US-BAYER-2013-105496

PATIENT
  Age: 21 Year
  Sex: Female

DRUGS (1)
  1. MIRENA [Suspect]
     Indication: CONTRACEPTION
     Dosage: 20 MG/24HR, CONT
     Route: 015
     Dates: start: 20120518, end: 20130826

REACTIONS (5)
  - Vulvovaginal burning sensation [None]
  - Fungal infection [None]
  - Anorectal discomfort [None]
  - Dyspareunia [None]
  - Fungal infection [None]
